FAERS Safety Report 17156185 (Version 1)
Quarter: 2019Q4

REPORT INFORMATION
  Report Type: Report from Study
  Country: BR (occurrence: BR)
  Receive Date: 20191216
  Receipt Date: 20191216
  Transmission Date: 20200122
  Serious: Yes (Disabling)
  Sender: FDA-Public Use
  Company Number: BR-EMD SERONO-9134457

PATIENT
  Sex: Female

DRUGS (1)
  1. REBIF [Suspect]
     Active Substance: INTERFERON BETA-1A
     Indication: MULTIPLE SCLEROSIS
     Dosage: DOSE: 44 (UNSPECIFIED UNITS)
     Route: 058
     Dates: start: 20090330

REACTIONS (2)
  - Aphasia [Unknown]
  - Bedridden [Unknown]
